FAERS Safety Report 5185208-2 (Version None)
Quarter: 2006Q4

REPORT INFORMATION
  Report Type: 
  Country: None (occurrence: None)
  Receive Date: 20061220
  Receipt Date: 20060621
  Transmission Date: 20070319
  Serious: No
  Sender: FDA-Public Use
  Company Number: US-GLAXOSMITHKLINE-A0609823A

PATIENT
  Age: 44 Year
  Sex: Female

DRUGS (8)
  1. NICODERM CQ [Suspect]
     Dates: start: 20060528, end: 20060529
  2. CYMBALTA [Concomitant]
  3. SERZONE [Concomitant]
  4. ADVAIR DISKUS 100/50 [Concomitant]
  5. DUONEB [Concomitant]
  6. ALBUTEROL [Concomitant]
  7. VICODIN [Concomitant]
  8. DIAZEPAM [Concomitant]

REACTIONS (8)
  - ASTHENIA [None]
  - CHILLS [None]
  - FATIGUE [None]
  - INFLUENZA LIKE ILLNESS [None]
  - MOVEMENT DISORDER [None]
  - PAIN [None]
  - PAIN IN EXTREMITY [None]
  - PYREXIA [None]
